FAERS Safety Report 23408863 (Version 1)
Quarter: 2024Q1

REPORT INFORMATION
  Report Type: Spontaneous
  Country: US (occurrence: None)
  Receive Date: 20240115
  Receipt Date: 20240115
  Transmission Date: 20240409
  Serious: Yes (Other)
  Sender: FDA-Public Use
  Company Number: None

PATIENT
  Age: 3 Month
  Sex: Female
  Weight: 6.1 kg

DRUGS (1)
  1. HEMANGEOL [Suspect]
     Active Substance: PROPRANOLOL HYDROCHLORIDE
     Indication: Haemangioma
     Dosage: FREQUENCY : TWICE A DAY;?
     Route: 048
     Dates: start: 20240111, end: 20240112

REACTIONS (5)
  - Psychomotor hyperactivity [None]
  - Hyperreflexia [None]
  - Gastrooesophageal reflux disease [None]
  - Salivary hypersecretion [None]
  - Therapy interrupted [None]

NARRATIVE: CASE EVENT DATE: 20240111
